FAERS Safety Report 9547913 (Version 1)
Quarter: 2013Q3

REPORT INFORMATION
  Report Type: Spontaneous
  Country: BD (occurrence: None)
  Receive Date: 20130920
  Receipt Date: 20130920
  Transmission Date: 20140515
  Serious: Yes (Hospitalization, Other)
  Sender: FDA-Public Use
  Company Number: CO-OR-BD-2013-076

PATIENT
  Age: 39 Year
  Sex: Male

DRUGS (2)
  1. PREDNISOLONE [Suspect]
     Indication: LEPROMATOUS LEPROSY
     Route: 048
  2. CLOFAZIMINE [Suspect]
     Indication: LEPROMATOUS LEPROSY
     Dosage: 3-6 MONTHS

REACTIONS (3)
  - Drug ineffective [None]
  - Type 2 lepra reaction [None]
  - Orchitis [None]
